FAERS Safety Report 4293122-X (Version None)
Quarter: 2004Q1

REPORT INFORMATION
  Report Type: 
  Country: None (occurrence: None)
  Receive Date: 20040212
  Receipt Date: 20030428
  Transmission Date: 20041129
  Serious: No
  Sender: FDA-Public Use
  Company Number: US-GLAXOSMITHKLINE-A0406409A

PATIENT
  Age: 61 Year
  Sex: Female
  Weight: 56.4 kg

DRUGS (1)
  1. PAXIL [Suspect]
     Indication: NAUSEA
     Dosage: 20MG PER DAY
     Route: 048
     Dates: start: 20030405

REACTIONS (1)
  - INSOMNIA [None]
